FAERS Safety Report 6438881-2 (Version None)
Quarter: 2009Q4

REPORT INFORMATION
  Report Type: 
  Country: None (occurrence: None)
  Receive Date: 20091113
  Receipt Date: 20091102
  Transmission Date: 20100525
  Serious: Yes (Hospitalization, Other)
  Sender: FDA-Public Use
  Company Number: PHEH2009US13267

PATIENT
  Sex: Female

DRUGS (12)
  1. EXJADE [Suspect]
     Indication: MYELODYSPLASTIC SYNDROME
     Dosage: 1 GRAM DAILY
     Route: 048
     Dates: start: 20080515, end: 20090723
  2. ACYCLOVIR SODIUM [Concomitant]
     Dosage: 400 MG, BID
     Route: 048
  3. ALLOPURINOL [Concomitant]
     Dosage: 100 MG, TIW
     Route: 048
  4. DARVON [Concomitant]
     Indication: PAIN
     Dosage: 65 MG, Q6H AS NEEDED
     Route: 048
  5. IMODIUM [Concomitant]
     Dosage: 2 MG, Q4H AS NEEDED
     Route: 048
  6. LEVOFLOXACIN [Concomitant]
     Dosage: 250 MG, QD
     Route: 048
  7. MEPHYTON [Concomitant]
     Dosage: 10 MG, TIW
     Route: 048
  8. MULTIVITAMIN PREPARATIONS WITH OR W/O MINERAL [Concomitant]
     Dosage: 1 TAB ORALLY ONCE A DAY
     Route: 048
  9. NOXAFIL [Concomitant]
     Dosage: 40MG/ML ORAL SUSPENSION, WITH MEALS
     Route: 048
  10. NYSTATIN [Concomitant]
     Dosage: 100,000 UNITS/ML ORAL SUSPENSION, 5ML SWISH AND SPIT ORALLY TID
     Route: 048
  11. OMEPRAZOLE [Concomitant]
     Dosage: 40 MG, QD
     Route: 048
  12. PERIDEX [Concomitant]
     Dosage: 15ML ORALLY SWISH AND SPIT TID
     Route: 048

REACTIONS (2)
  - COLITIS [None]
  - DIARRHOEA [None]
